FAERS Safety Report 4553969-9 (Version None)
Quarter: 2005Q1

REPORT INFORMATION
  Report Type: 
  Country: None (occurrence: None)
  Receive Date: 20050118
  Receipt Date: 20050104
  Transmission Date: 20050727
  Serious: Yes (Other)
  Sender: FDA-Public Use
  Company Number: US-JNJFOC-20040703050

PATIENT
  Sex: Female
  Weight: 50.9 kg

DRUGS (13)
  1. REMICADE [Suspect]
     Route: 042
  2. REMICADE [Suspect]
     Indication: CROHN'S DISEASE
     Dosage: 2 DOSES IN 2003
     Route: 042
  3. PRENATAL VITAMINS [Concomitant]
  4. PRENATAL VITAMINS [Concomitant]
  5. PRENATAL VITAMINS [Concomitant]
  6. PRENATAL VITAMINS [Concomitant]
  7. PRENATAL VITAMINS [Concomitant]
  8. PRENATAL VITAMINS [Concomitant]
  9. PRENATAL VITAMINS [Concomitant]
  10. PRENATAL VITAMINS [Concomitant]
  11. IMODIUM [Concomitant]
  12. ULTRAM [Concomitant]
  13. ULTRAM [Concomitant]

REACTIONS (3)
  - ABORTION SPONTANEOUS [None]
  - DRUG EXPOSURE DURING PREGNANCY [None]
  - WEIGHT DECREASED [None]
